FAERS Safety Report 10408592 (Version 1)
Quarter: 2014Q3

REPORT INFORMATION
  Report Type: Report from Study
  Country: MX (occurrence: MX)
  Receive Date: 20140826
  Receipt Date: 20140826
  Transmission Date: 20150326
  Serious: Yes (Hospitalization)
  Sender: FDA-Public Use
  Company Number: PHHY2014MX105792

PATIENT
  Age: 53 Year
  Sex: Male

DRUGS (3)
  1. DIOVAN [Suspect]
     Active Substance: VALSARTAN
     Indication: HYPERTENSION
     Dosage: 1 DF (80 MG), DAILY
     Route: 048
     Dates: start: 201306
  2. ACETYLSALICYLIC ACID [Concomitant]
     Active Substance: ASPIRIN
     Indication: GASTROINTESTINAL DISORDER
     Dosage: 0.5 UKN, DAILY
     Dates: start: 201408
  3. ATORVASTATIN [Concomitant]
     Active Substance: ATORVASTATIN
     Indication: THROMBOSIS
     Dosage: 2 UKN, DAILY
     Dates: start: 201408

REACTIONS (3)
  - Insomnia [Recovered/Resolved]
  - Respiratory disorder [Recovered/Resolved]
  - Pulmonary valve disease [Recovered/Resolved]

NARRATIVE: CASE EVENT DATE: 201408
